FAERS Safety Report 13212969 (Version 2)
Quarter: 2017Q1

REPORT INFORMATION
  Report Type: Spontaneous
  Country: FR (occurrence: FR)
  Receive Date: 20170210
  Receipt Date: 20170303
  Transmission Date: 20170428
  Serious: Yes (Hospitalization)
  Sender: FDA-Public Use
  Company Number: FR-CANTON LABORATORIES, LLC-1062965

PATIENT
  Age: 57 Year
  Sex: Female

DRUGS (5)
  1. LEVOTHYROX (LEVOTHYROXINE) [Concomitant]
     Route: 048
  2. NAPROSYN [Suspect]
     Active Substance: NAPROXEN
     Indication: EPICONDYLITIS
     Route: 048
     Dates: start: 20161219, end: 20161223
  3. CRESTOR [Concomitant]
     Active Substance: ROSUVASTATIN CALCIUM
     Route: 065
  4. ROACTEMRA (TOCILIZUMAB 20 MILLIGRAM/MILLILITERS) [Suspect]
     Active Substance: TOCILIZUMAB
     Route: 058
     Dates: start: 20150608, end: 20161219
  5. IMETH (METHOTREXATE 10MG) [Suspect]
     Active Substance: METHOTREXATE SODIUM
     Route: 048
     Dates: start: 20150608, end: 20161220

REACTIONS (2)
  - Streptococcal abscess [Recovered/Resolved]
  - Cellulitis [Recovered/Resolved]

NARRATIVE: CASE EVENT DATE: 20161219
